FAERS Safety Report 19493237 (Version 3)
Quarter: 2021Q3

REPORT INFORMATION
  Report Type: Spontaneous
  Country: CA (occurrence: CA)
  Receive Date: 20210705
  Receipt Date: 20210824
  Transmission Date: 20211014
  Serious: Yes (Other)
  Sender: FDA-Public Use
  Company Number: CA-PFIZER INC-2021753487

PATIENT
  Age: 45 Year
  Sex: Female

DRUGS (1)
  1. XELJANZ [Suspect]
     Active Substance: TOFACITINIB CITRATE
     Indication: COLITIS ULCERATIVE
     Dosage: 10 MG, TWICE A DAY
     Route: 048
     Dates: start: 20210617

REACTIONS (4)
  - Haematochezia [Recovering/Resolving]
  - Condition aggravated [Unknown]
  - Acne [Not Recovered/Not Resolved]
  - Mucous stools [Unknown]

NARRATIVE: CASE EVENT DATE: 2021
